FAERS Safety Report 18074339 (Version 2)
Quarter: 2020Q3

REPORT INFORMATION
  Report Type: Spontaneous
  Country: DE (occurrence: DE)
  Receive Date: 20200727
  Receipt Date: 20200818
  Transmission Date: 20201103
  Serious: Yes (Hospitalization, Other)
  Sender: FDA-Public Use
  Company Number: DE-GILEAD-2020-0485298

PATIENT
  Age: 58 Year
  Sex: Male
  Weight: 76 kg

DRUGS (4)
  1. PANTOZOLE [Concomitant]
     Active Substance: PANTOPRAZOLE SODIUM
  2. AMPHO?MORONAL [Concomitant]
     Active Substance: AMPHOTERICIN B
  3. VALSARTAN. [Concomitant]
     Active Substance: VALSARTAN
  4. ATRIPLA [Suspect]
     Active Substance: EFAVIRENZ\EMTRICITABINE\TENOFOVIR DISOPROXIL FUMARATE
     Indication: HIV INFECTION
     Dosage: 600/200/245
     Route: 048

REACTIONS (2)
  - Diverticulum oesophageal [Recovered/Resolved]
  - Oesophageal cyst [Recovered/Resolved]

NARRATIVE: CASE EVENT DATE: 20200715
